FAERS Safety Report 6924175-5 (Version None)
Quarter: 2010Q3

REPORT INFORMATION
  Report Type: 
  Country: None (occurrence: None)
  Receive Date: 20100812
  Receipt Date: 20100812
  Transmission Date: 20110219
  Serious: Yes (Other)
  Sender: FDA-Public Use
  Company Number: None

PATIENT
  Sex: Male
  Weight: 88.6 kg

DRUGS (1)
  1. DEXTROAMPHETAMINE HYDROCHLORIDE TIME-DELAYED CAP [Suspect]
     Indication: ATTENTION DEFICIT/HYPERACTIVITY DISORDER
     Dosage: 5MG CAPSULE 3 AM, 1 PM PO
     Route: 048
     Dates: start: 20100716, end: 20100719

REACTIONS (9)
  - APHASIA [None]
  - CATATONIA [None]
  - DISTURBANCE IN ATTENTION [None]
  - DYSPHORIA [None]
  - FATIGUE [None]
  - IRRITABILITY [None]
  - PRODUCT QUALITY ISSUE [None]
  - THINKING ABNORMAL [None]
  - TIC [None]
